FAERS Safety Report 14479216 (Version 1)
Quarter: 2018Q1

REPORT INFORMATION
  Report Type: Spontaneous
  Country: CN (occurrence: CN)
  Receive Date: 20180202
  Receipt Date: 20180202
  Transmission Date: 20180509
  Serious: Yes (Other)
  Sender: FDA-Public Use
  Company Number: CN-ACCORD-063086

PATIENT
  Age: 37 Year
  Sex: Female

DRUGS (2)
  1. CISPLATIN. [Suspect]
     Active Substance: CISPLATIN
     Indication: NASOPHARYNGEAL CANCER STAGE III
     Dosage: ON DAYS 1, 22, AND 43 DURING IMRT
     Route: 042
  2. DEXAMETHASONE. [Concomitant]
     Active Substance: DEXAMETHASONE
     Indication: PROPHYLAXIS

REACTIONS (2)
  - Herpes simplex encephalitis [Recovering/Resolving]
  - Granulocytopenia [Unknown]
